FAERS Safety Report 24165170 (Version 2)
Quarter: 2025Q1

REPORT INFORMATION
  Report Type: Spontaneous
  Country: CA (occurrence: CA)
  Receive Date: 20240802
  Receipt Date: 20250318
  Transmission Date: 20250409
  Serious: Yes (Death, Life-Threatening, Hospitalization, Disabling, Congenital Anomaly, Other)
  Sender: Haleon PLC
  Company Number: CA-GLAXOSMITHKLINE-CA2015187246

PATIENT
  Age: 43 Year
  Sex: Female
  Weight: 68 kg

DRUGS (484)
  1. VOLTAREN [Suspect]
     Active Substance: DICLOFENAC SODIUM
     Indication: Product used for unknown indication
     Route: 065
  2. AIMOVIG [Suspect]
     Active Substance: ERENUMAB-AOOE
     Indication: Migraine
     Route: 065
  3. SARILUMAB [Suspect]
     Active Substance: SARILUMAB
     Indication: Rheumatoid arthritis
     Route: 065
  4. PREGABALIN [Suspect]
     Active Substance: PREGABALIN
     Indication: Fibromyalgia
     Route: 065
  5. PREDNISONE [Suspect]
     Active Substance: PREDNISONE
     Indication: Rheumatoid arthritis
     Route: 048
  6. LEFLUNOMIDE [Suspect]
     Active Substance: LEFLUNOMIDE
     Indication: Rheumatoid arthritis
     Route: 048
  7. LEFLUNOMIDE [Suspect]
     Active Substance: LEFLUNOMIDE
     Route: 048
  8. LEFLUNOMIDE [Suspect]
     Active Substance: LEFLUNOMIDE
     Route: 065
  9. LEFLUNOMIDE [Suspect]
     Active Substance: LEFLUNOMIDE
     Route: 065
  10. CANDESARTAN [Suspect]
     Active Substance: CANDESARTAN
     Indication: Migraine
     Route: 050
  11. CETIRIZINE HYDROCHLORIDE\PSEUDOEPHEDRINE HYDROCHLORIDE [Suspect]
     Active Substance: CETIRIZINE HYDROCHLORIDE\PSEUDOEPHEDRINE HYDROCHLORIDE
     Indication: Rheumatoid arthritis
     Route: 065
  12. SIMPONI [Suspect]
     Active Substance: GOLIMUMAB
     Indication: Rheumatoid arthritis
     Route: 058
  13. SIMPONI [Suspect]
     Active Substance: GOLIMUMAB
     Route: 058
  14. SIMPONI [Suspect]
     Active Substance: GOLIMUMAB
     Route: 058
  15. SIMPONI [Suspect]
     Active Substance: GOLIMUMAB
     Route: 058
  16. SIMPONI [Suspect]
     Active Substance: GOLIMUMAB
     Route: 065
  17. SIMPONI [Suspect]
     Active Substance: GOLIMUMAB
     Route: 058
  18. SIMPONI [Suspect]
     Active Substance: GOLIMUMAB
     Route: 065
  19. ALENDRONATE SODIUM\CHOLECALCIFEROL [Suspect]
     Active Substance: ALENDRONATE SODIUM\CHOLECALCIFEROL
     Indication: Rheumatoid arthritis
     Route: 048
  20. TOCILIZUMAB [Suspect]
     Active Substance: TOCILIZUMAB
     Indication: Rheumatoid arthritis
     Route: 065
  21. TOCILIZUMAB [Suspect]
     Active Substance: TOCILIZUMAB
     Route: 058
  22. TOCILIZUMAB [Suspect]
     Active Substance: TOCILIZUMAB
     Route: 065
  23. CERTOLIZUMAB PEGOL [Suspect]
     Active Substance: CERTOLIZUMAB PEGOL
     Indication: Rheumatoid arthritis
     Route: 058
  24. ORENCIA [Suspect]
     Active Substance: ABATACEPT
     Indication: Rheumatoid arthritis
     Route: 042
  25. ORENCIA [Suspect]
     Active Substance: ABATACEPT
     Route: 042
  26. ORENCIA [Suspect]
     Active Substance: ABATACEPT
     Route: 058
  27. ORENCIA [Suspect]
     Active Substance: ABATACEPT
     Route: 065
  28. ORENCIA [Suspect]
     Active Substance: ABATACEPT
     Route: 058
  29. ORENCIA [Suspect]
     Active Substance: ABATACEPT
     Route: 058
  30. ORENCIA [Suspect]
     Active Substance: ABATACEPT
     Route: 042
  31. ORENCIA [Suspect]
     Active Substance: ABATACEPT
     Route: 042
  32. CETIRIZINE HYDROCHLORIDE [Suspect]
     Active Substance: CETIRIZINE HYDROCHLORIDE
     Indication: Rheumatoid arthritis
     Route: 065
  33. CETIRIZINE HYDROCHLORIDE [Suspect]
     Active Substance: CETIRIZINE HYDROCHLORIDE
     Route: 065
  34. CETIRIZINE HYDROCHLORIDE [Suspect]
     Active Substance: CETIRIZINE HYDROCHLORIDE
     Route: 065
  35. DICLOFENAC POTASSIUM [Suspect]
     Active Substance: DICLOFENAC POTASSIUM
     Indication: Product used for unknown indication
     Route: 065
  36. DICLOFENAC POTASSIUM [Suspect]
     Active Substance: DICLOFENAC POTASSIUM
     Route: 065
  37. DICLOFENAC POTASSIUM [Suspect]
     Active Substance: DICLOFENAC POTASSIUM
     Route: 065
  38. XELJANZ [Suspect]
     Active Substance: TOFACITINIB CITRATE
     Indication: Rheumatoid arthritis
     Dosage: 5 MG, BID (1 EVERY 12 HOURS)
     Route: 065
  39. XELJANZ [Suspect]
     Active Substance: TOFACITINIB CITRATE
     Route: 065
  40. XELJANZ [Suspect]
     Active Substance: TOFACITINIB CITRATE
     Route: 065
  41. XELJANZ [Suspect]
     Active Substance: TOFACITINIB CITRATE
     Route: 065
  42. XELJANZ [Suspect]
     Active Substance: TOFACITINIB CITRATE
     Route: 065
  43. XELJANZ [Suspect]
     Active Substance: TOFACITINIB CITRATE
     Route: 065
  44. XELJANZ [Suspect]
     Active Substance: TOFACITINIB CITRATE
     Route: 065
  45. XELJANZ [Suspect]
     Active Substance: TOFACITINIB CITRATE
     Route: 048
  46. TOPICORT [Suspect]
     Active Substance: DESOXIMETASONE
     Indication: Rheumatoid arthritis
     Route: 058
  47. TOPICORT [Suspect]
     Active Substance: DESOXIMETASONE
     Route: 003
  48. TOPICORT [Suspect]
     Active Substance: DESOXIMETASONE
     Route: 061
  49. TOPICORT [Suspect]
     Active Substance: DESOXIMETASONE
     Route: 058
  50. TOPICORT [Suspect]
     Active Substance: DESOXIMETASONE
     Route: 048
  51. HYDROXYCHLOROQUINE [Suspect]
     Active Substance: HYDROXYCHLOROQUINE
     Indication: Rheumatoid arthritis
     Route: 065
  52. HYDROXYCHLOROQUINE [Suspect]
     Active Substance: HYDROXYCHLOROQUINE
     Route: 048
  53. HYDROXYCHLOROQUINE [Suspect]
     Active Substance: HYDROXYCHLOROQUINE
     Route: 048
  54. HYDROXYCHLOROQUINE [Suspect]
     Active Substance: HYDROXYCHLOROQUINE
     Route: 048
  55. HYDROXYCHLOROQUINE [Suspect]
     Active Substance: HYDROXYCHLOROQUINE
     Route: 048
  56. HYDROXYCHLOROQUINE [Suspect]
     Active Substance: HYDROXYCHLOROQUINE
     Route: 065
  57. HYDROXYCHLOROQUINE [Suspect]
     Active Substance: HYDROXYCHLOROQUINE
     Route: 048
  58. RITUXIMAB [Suspect]
     Active Substance: RITUXIMAB
     Indication: Rheumatoid arthritis
     Route: 050
  59. RITUXIMAB [Suspect]
     Active Substance: RITUXIMAB
     Indication: Product used for unknown indication
     Route: 042
  60. RITUXIMAB [Suspect]
     Active Substance: RITUXIMAB
     Route: 050
  61. RITUXIMAB [Suspect]
     Active Substance: RITUXIMAB
     Route: 042
  62. RITUXIMAB [Suspect]
     Active Substance: RITUXIMAB
     Route: 050
  63. RITUXIMAB [Suspect]
     Active Substance: RITUXIMAB
     Route: 042
  64. RITUXIMAB [Suspect]
     Active Substance: RITUXIMAB
     Route: 041
  65. RITUXIMAB [Suspect]
     Active Substance: RITUXIMAB
     Route: 041
  66. RITUXIMAB [Suspect]
     Active Substance: RITUXIMAB
     Route: 050
  67. RITUXIMAB [Suspect]
     Active Substance: RITUXIMAB
     Dosage: 2 G, QD
     Route: 050
  68. RITUXIMAB [Suspect]
     Active Substance: RITUXIMAB
     Route: 050
  69. RITUXIMAB [Suspect]
     Active Substance: RITUXIMAB
     Route: 050
  70. RITUXIMAB [Suspect]
     Active Substance: RITUXIMAB
     Route: 050
  71. RITUXIMAB [Suspect]
     Active Substance: RITUXIMAB
     Route: 065
  72. RITUXIMAB [Suspect]
     Active Substance: RITUXIMAB
     Route: 065
  73. RITUXIMAB [Suspect]
     Active Substance: RITUXIMAB
     Route: 050
  74. RITUXIMAB [Suspect]
     Active Substance: RITUXIMAB
     Route: 050
  75. RITUXIMAB [Suspect]
     Active Substance: RITUXIMAB
     Dosage: 2000 MG, QD
     Route: 065
  76. RITUXIMAB [Suspect]
     Active Substance: RITUXIMAB
     Route: 050
  77. VITAMIN C [Suspect]
     Active Substance: ASCORBIC ACID
     Indication: Product used for unknown indication
     Route: 065
  78. LEFLUNOMIDE [Suspect]
     Active Substance: LEFLUNOMIDE
     Indication: Rheumatoid arthritis
     Route: 048
  79. LEFLUNOMIDE [Suspect]
     Active Substance: LEFLUNOMIDE
     Route: 065
  80. REMICADE [Suspect]
     Active Substance: INFLIXIMAB
     Indication: Product used for unknown indication
     Route: 042
  81. REMICADE [Suspect]
     Active Substance: INFLIXIMAB
     Route: 065
  82. PSEUDOEPHEDRINE HYDROCHLORIDE [Suspect]
     Active Substance: PSEUDOEPHEDRINE HYDROCHLORIDE
     Indication: Rheumatoid arthritis
     Route: 065
  83. PSEUDOEPHEDRINE HYDROCHLORIDE [Suspect]
     Active Substance: PSEUDOEPHEDRINE HYDROCHLORIDE
     Route: 065
  84. PSEUDOEPHEDRINE HYDROCHLORIDE [Suspect]
     Active Substance: PSEUDOEPHEDRINE HYDROCHLORIDE
     Dosage: 25 MG, QD
     Route: 065
  85. FOLIC ACID [Suspect]
     Active Substance: FOLIC ACID
     Indication: Product used for unknown indication
     Route: 065
  86. CETIRIZINE HYDROCHLORIDE [Suspect]
     Active Substance: CETIRIZINE HYDROCHLORIDE
     Indication: Rheumatoid arthritis
     Route: 065
  87. CETIRIZINE HYDROCHLORIDE [Suspect]
     Active Substance: CETIRIZINE HYDROCHLORIDE
     Route: 065
  88. ACTEMRA [Suspect]
     Active Substance: TOCILIZUMAB
     Indication: Rheumatoid arthritis
     Route: 058
  89. HYDROCORTISONE ACETATE [Suspect]
     Active Substance: HYDROCORTISONE ACETATE
     Indication: Rheumatoid arthritis
     Route: 065
  90. HYDROCORTISONE ACETATE [Suspect]
     Active Substance: HYDROCORTISONE ACETATE
     Route: 048
  91. HYDROCORTISONE ACETATE [Suspect]
     Active Substance: HYDROCORTISONE ACETATE
     Route: 003
  92. HYDROCORTISONE ACETATE [Suspect]
     Active Substance: HYDROCORTISONE ACETATE
     Route: 058
  93. HYDROCORTISONE [Suspect]
     Active Substance: HYDROCORTISONE
     Indication: Rheumatoid arthritis
     Route: 065
  94. HYDROCORTISONE [Suspect]
     Active Substance: HYDROCORTISONE
     Route: 058
  95. HYDROCORTISONE [Suspect]
     Active Substance: HYDROCORTISONE
     Route: 003
  96. HYDROCORTISONE [Suspect]
     Active Substance: HYDROCORTISONE
     Route: 065
  97. HYDROCORTISONE [Suspect]
     Active Substance: HYDROCORTISONE
     Route: 003
  98. HYDROCORTISONE [Suspect]
     Active Substance: HYDROCORTISONE
     Route: 058
  99. HYDROCORTISONE [Suspect]
     Active Substance: HYDROCORTISONE
     Route: 050
  100. HYDROCORTISONE [Suspect]
     Active Substance: HYDROCORTISONE
     Route: 048
  101. HYDROCORTISONE [Suspect]
     Active Substance: HYDROCORTISONE
     Route: 061
  102. SALAZOPYRINE [Suspect]
     Active Substance: SULFASALAZINE
     Indication: Product used for unknown indication
     Route: 065
  103. HYDROCORTISONE [Suspect]
     Active Substance: HYDROCORTISONE
     Indication: Rheumatoid arthritis
     Route: 058
  104. DESOXIMETASONE [Suspect]
     Active Substance: DESOXIMETASONE
     Indication: Product used for unknown indication
     Route: 065
  105. DESOXIMETASONE [Suspect]
     Active Substance: DESOXIMETASONE
     Route: 003
  106. DESOXIMETASONE [Suspect]
     Active Substance: DESOXIMETASONE
     Dosage: 25 MG, WE (1 EVERY 1 WEEK)
     Route: 065
  107. DESOXIMETASONE [Suspect]
     Active Substance: DESOXIMETASONE
     Route: 061
  108. ADALIMUMAB [Suspect]
     Active Substance: ADALIMUMAB
     Indication: Rheumatoid arthritis
     Route: 050
  109. ADALIMUMAB [Suspect]
     Active Substance: ADALIMUMAB
     Route: 065
  110. ADALIMUMAB [Suspect]
     Active Substance: ADALIMUMAB
     Route: 050
  111. ADALIMUMAB [Suspect]
     Active Substance: ADALIMUMAB
     Route: 065
  112. ADALIMUMAB [Suspect]
     Active Substance: ADALIMUMAB
     Route: 050
  113. ADALIMUMAB [Suspect]
     Active Substance: ADALIMUMAB
     Route: 065
  114. ADALIMUMAB [Suspect]
     Active Substance: ADALIMUMAB
     Route: 065
  115. ADALIMUMAB [Suspect]
     Active Substance: ADALIMUMAB
     Route: 050
  116. ERELZI [Suspect]
     Active Substance: ETANERCEPT-SZZS
     Indication: Rheumatoid arthritis
     Route: 050
  117. ERELZI [Suspect]
     Active Substance: ETANERCEPT-SZZS
     Route: 058
  118. ERELZI [Suspect]
     Active Substance: ETANERCEPT-SZZS
     Route: 050
  119. ERELZI [Suspect]
     Active Substance: ETANERCEPT-SZZS
     Route: 065
  120. ERELZI [Suspect]
     Active Substance: ETANERCEPT-SZZS
     Route: 065
  121. ERELZI [Suspect]
     Active Substance: ETANERCEPT-SZZS
     Route: 065
  122. ERELZI [Suspect]
     Active Substance: ETANERCEPT-SZZS
     Route: 058
  123. ERELZI [Suspect]
     Active Substance: ETANERCEPT-SZZS
     Dosage: 50 MG
     Route: 058
  124. ERELZI [Suspect]
     Active Substance: ETANERCEPT-SZZS
     Route: 065
  125. ERELZI [Suspect]
     Active Substance: ETANERCEPT-SZZS
     Route: 065
  126. ERELZI [Suspect]
     Active Substance: ETANERCEPT-SZZS
     Route: 058
  127. CETIRIZINE HYDROCHLORIDE\PSEUDOEPHEDRINE HYDROCHLORIDE [Suspect]
     Active Substance: CETIRIZINE HYDROCHLORIDE\PSEUDOEPHEDRINE HYDROCHLORIDE
     Indication: Product used for unknown indication
     Route: 065
  128. COSENTYX [Suspect]
     Active Substance: SECUKINUMAB
     Indication: Psoriatic arthropathy
     Route: 065
  129. COSENTYX [Suspect]
     Active Substance: SECUKINUMAB
     Indication: Rheumatoid arthritis
     Route: 065
  130. COSENTYX [Suspect]
     Active Substance: SECUKINUMAB
     Route: 065
  131. COSENTYX [Suspect]
     Active Substance: SECUKINUMAB
     Route: 065
  132. CIMZIA [Suspect]
     Active Substance: CERTOLIZUMAB PEGOL
     Indication: Psoriasis
     Route: 058
  133. CIMZIA [Suspect]
     Active Substance: CERTOLIZUMAB PEGOL
     Indication: Rheumatoid arthritis
  134. ORENCIA [Suspect]
     Active Substance: ABATACEPT
     Indication: Product used for unknown indication
     Route: 058
  135. ORENCIA [Suspect]
     Active Substance: ABATACEPT
     Route: 042
  136. ORENCIA [Suspect]
     Active Substance: ABATACEPT
     Route: 058
  137. ORENCIA [Suspect]
     Active Substance: ABATACEPT
     Route: 042
  138. ORENCIA [Suspect]
     Active Substance: ABATACEPT
     Route: 042
  139. ORENCIA [Suspect]
     Active Substance: ABATACEPT
     Route: 042
  140. ORENCIA [Suspect]
     Active Substance: ABATACEPT
     Route: 058
  141. ALENDRONIC ACID [Suspect]
     Active Substance: ALENDRONIC ACID
     Indication: Rheumatoid arthritis
     Route: 050
  142. ALENDRONIC ACID [Suspect]
     Active Substance: ALENDRONIC ACID
     Route: 048
  143. ALENDRONIC ACID [Suspect]
     Active Substance: ALENDRONIC ACID
     Route: 048
  144. ALENDRONIC ACID [Suspect]
     Active Substance: ALENDRONIC ACID
     Route: 065
  145. RITUXAN [Suspect]
     Active Substance: RITUXIMAB
     Indication: Rheumatoid arthritis
     Route: 042
     Dates: start: 2009, end: 2010
  146. RITUXAN [Suspect]
     Active Substance: RITUXIMAB
     Route: 065
     Dates: start: 2009, end: 2010
  147. RITUXAN [Suspect]
     Active Substance: RITUXIMAB
     Route: 043
  148. ARAVA [Suspect]
     Active Substance: LEFLUNOMIDE
     Indication: Rheumatoid arthritis
     Route: 048
  149. ARAVA [Suspect]
     Active Substance: LEFLUNOMIDE
     Route: 065
  150. ARAVA [Suspect]
     Active Substance: LEFLUNOMIDE
     Route: 065
  151. ARAVA [Suspect]
     Active Substance: LEFLUNOMIDE
     Route: 048
  152. ARAVA [Suspect]
     Active Substance: LEFLUNOMIDE
     Route: 065
  153. ARAVA [Suspect]
     Active Substance: LEFLUNOMIDE
     Route: 048
  154. DICLOFENAC DIETHYLAMINE [Suspect]
     Active Substance: DICLOFENAC DIETHYLAMINE
     Indication: Product used for unknown indication
     Route: 065
  155. HYDROXYCHLOROQUINE SULFATE [Suspect]
     Active Substance: HYDROXYCHLOROQUINE SULFATE
     Indication: Rheumatoid arthritis
     Route: 048
  156. HYDROXYCHLOROQUINE SULFATE [Suspect]
     Active Substance: HYDROXYCHLOROQUINE SULFATE
     Dosage: 400 MG, QD
     Route: 048
  157. HYDROXYCHLOROQUINE SULFATE [Suspect]
     Active Substance: HYDROXYCHLOROQUINE SULFATE
     Route: 065
  158. HYDROXYCHLOROQUINE SULFATE [Suspect]
     Active Substance: HYDROXYCHLOROQUINE SULFATE
     Dosage: 40 MG, QD
     Route: 065
  159. HYDROXYCHLOROQUINE SULFATE [Suspect]
     Active Substance: HYDROXYCHLOROQUINE SULFATE
     Dosage: 400 MG, QD
     Route: 058
  160. HYDROXYCHLOROQUINE SULFATE [Suspect]
     Active Substance: HYDROXYCHLOROQUINE SULFATE
     Route: 016
  161. HYDROXYCHLOROQUINE SULFATE [Suspect]
     Active Substance: HYDROXYCHLOROQUINE SULFATE
     Dosage: 400 MG, QD
     Route: 066
  162. HYDROXYCHLOROQUINE SULFATE [Suspect]
     Active Substance: HYDROXYCHLOROQUINE SULFATE
     Route: 065
  163. HYDROXYCHLOROQUINE SULFATE [Suspect]
     Active Substance: HYDROXYCHLOROQUINE SULFATE
     Route: 065
  164. HYDROXYCHLOROQUINE SULFATE [Suspect]
     Active Substance: HYDROXYCHLOROQUINE SULFATE
     Dosage: 400 MG, QD (1 EVERY 1 DAY)
     Route: 065
  165. HYDROXYCHLOROQUINE SULFATE [Suspect]
     Active Substance: HYDROXYCHLOROQUINE SULFATE
     Route: 048
  166. HYDROXYCHLOROQUINE SULFATE [Suspect]
     Active Substance: HYDROXYCHLOROQUINE SULFATE
     Route: 048
  167. HYDROXYCHLOROQUINE SULFATE [Suspect]
     Active Substance: HYDROXYCHLOROQUINE SULFATE
     Route: 048
  168. HYDROXYCHLOROQUINE SULFATE [Suspect]
     Active Substance: HYDROXYCHLOROQUINE SULFATE
     Dosage: 400 MG, QD (1 EVERY 1 DAY)
     Route: 048
  169. HYDROXYCHLOROQUINE SULFATE [Suspect]
     Active Substance: HYDROXYCHLOROQUINE SULFATE
     Route: 048
  170. HYDROXYCHLOROQUINE SULFATE [Suspect]
     Active Substance: HYDROXYCHLOROQUINE SULFATE
     Route: 065
  171. HYDROXYCHLOROQUINE SULFATE [Suspect]
     Active Substance: HYDROXYCHLOROQUINE SULFATE
     Route: 048
  172. HYDROXYCHLOROQUINE SULFATE [Suspect]
     Active Substance: HYDROXYCHLOROQUINE SULFATE
     Dosage: UNK UNK, QD
     Route: 048
  173. METHOTREXATE SODIUM [Suspect]
     Active Substance: METHOTREXATE SODIUM
     Indication: Rheumatoid arthritis
     Route: 048
  174. REMICADE [Suspect]
     Active Substance: INFLIXIMAB
     Indication: Rheumatoid arthritis
     Route: 065
  175. REMICADE [Suspect]
     Active Substance: INFLIXIMAB
     Route: 042
  176. SULFASALAZINE [Suspect]
     Active Substance: SULFASALAZINE
     Indication: Rheumatoid arthritis
     Dosage: 2 G, QD
     Route: 048
  177. SULFASALAZINE [Suspect]
     Active Substance: SULFASALAZINE
     Indication: Psoriatic arthropathy
     Dosage: 1000 MG, BID
     Route: 048
  178. SULFASALAZINE [Suspect]
     Active Substance: SULFASALAZINE
     Route: 048
  179. SULFASALAZINE [Suspect]
     Active Substance: SULFASALAZINE
     Route: 065
  180. SULFASALAZINE [Suspect]
     Active Substance: SULFASALAZINE
     Route: 048
  181. SULFASALAZINE [Suspect]
     Active Substance: SULFASALAZINE
     Dosage: 300 MG, QD
     Route: 048
  182. SULFASALAZINE [Suspect]
     Active Substance: SULFASALAZINE
     Route: 065
  183. SULFASALAZINE [Suspect]
     Active Substance: SULFASALAZINE
     Route: 065
  184. SULFASALAZINE [Suspect]
     Active Substance: SULFASALAZINE
     Dosage: 1500 MG, BID
     Route: 065
  185. SULFASALAZINE [Suspect]
     Active Substance: SULFASALAZINE
     Dosage: 1 DF, BID
     Route: 048
  186. SULFASALAZINE [Suspect]
     Active Substance: SULFASALAZINE
     Dosage: 300 MG, QD
     Route: 065
  187. SULFASALAZINE [Suspect]
     Active Substance: SULFASALAZINE
     Dosage: 1 G, QD
     Route: 048
  188. SULFASALAZINE [Suspect]
     Active Substance: SULFASALAZINE
     Dosage: 2 G, BID
     Route: 048
  189. SULFASALAZINE [Suspect]
     Active Substance: SULFASALAZINE
     Dosage: 1 G, BID
     Route: 065
  190. SULFASALAZINE [Suspect]
     Active Substance: SULFASALAZINE
     Route: 048
  191. SULFASALAZINE [Suspect]
     Active Substance: SULFASALAZINE
     Route: 048
  192. SULFASALAZINE [Suspect]
     Active Substance: SULFASALAZINE
     Route: 065
  193. SULFASALAZINE [Suspect]
     Active Substance: SULFASALAZINE
     Dosage: 1 G, BID
     Route: 048
  194. SULFASALAZINE [Suspect]
     Active Substance: SULFASALAZINE
     Dosage: UNK UNK, BID
     Route: 048
  195. SULFASALAZINE [Suspect]
     Active Substance: SULFASALAZINE
     Dosage: 1 DF, BID
     Route: 048
  196. SULFASALAZINE [Suspect]
     Active Substance: SULFASALAZINE
     Dosage: 1 G, BID
     Route: 058
  197. SULFASALAZINE [Suspect]
     Active Substance: SULFASALAZINE
     Dosage: 2 G, QD
     Route: 065
  198. SULFASALAZINE [Suspect]
     Active Substance: SULFASALAZINE
     Dosage: 300 MG, QD
     Route: 065
  199. SULFASALAZINE [Suspect]
     Active Substance: SULFASALAZINE
     Route: 048
  200. SULFASALAZINE [Suspect]
     Active Substance: SULFASALAZINE
  201. SULFASALAZINE [Suspect]
     Active Substance: SULFASALAZINE
     Dosage: 2 G, QD
     Route: 048
  202. SULFASALAZINE [Suspect]
     Active Substance: SULFASALAZINE
     Dosage: 1 DF, BID
     Route: 048
  203. SULFASALAZINE [Suspect]
     Active Substance: SULFASALAZINE
     Dosage: 2 G, QD
     Route: 048
  204. SULFASALAZINE [Suspect]
     Active Substance: SULFASALAZINE
     Dosage: 1500 MG, BID
     Route: 065
  205. SULFASALAZINE [Suspect]
     Active Substance: SULFASALAZINE
     Route: 048
  206. SULFASALAZINE [Suspect]
     Active Substance: SULFASALAZINE
     Route: 048
     Dates: start: 2006, end: 2007
  207. SULFASALAZINE [Suspect]
     Active Substance: SULFASALAZINE
     Dosage: 1000 MG, BID
     Route: 048
  208. SULFASALAZINE [Suspect]
     Active Substance: SULFASALAZINE
     Route: 065
  209. SULFASALAZINE [Suspect]
     Active Substance: SULFASALAZINE
     Dosage: 1 G, BID
     Route: 048
  210. SULFASALAZINE [Suspect]
     Active Substance: SULFASALAZINE
     Dosage: UNK UNK, BID
     Route: 048
  211. SULFASALAZINE [Suspect]
     Active Substance: SULFASALAZINE
     Route: 058
  212. FOSAMAX [Suspect]
     Active Substance: ALENDRONATE SODIUM
     Indication: Rheumatoid arthritis
     Route: 048
  213. FOSAMAX [Suspect]
     Active Substance: ALENDRONATE SODIUM
     Route: 005
  214. FOSAMAX [Suspect]
     Active Substance: ALENDRONATE SODIUM
     Route: 048
  215. FOSAMAX [Suspect]
     Active Substance: ALENDRONATE SODIUM
     Route: 048
  216. FOSAMAX [Suspect]
     Active Substance: ALENDRONATE SODIUM
     Route: 058
  217. FOSAMAX [Suspect]
     Active Substance: ALENDRONATE SODIUM
     Route: 065
  218. FOSAMAX [Suspect]
     Active Substance: ALENDRONATE SODIUM
     Route: 048
  219. FOSAMAX [Suspect]
     Active Substance: ALENDRONATE SODIUM
     Route: 065
  220. FOSAMAX [Suspect]
     Active Substance: ALENDRONATE SODIUM
     Route: 065
  221. FOSAMAX [Suspect]
     Active Substance: ALENDRONATE SODIUM
     Route: 065
  222. ACETAMINOPHEN [Suspect]
     Active Substance: ACETAMINOPHEN
     Indication: Rheumatoid arthritis
  223. ACETAMINOPHEN [Suspect]
     Active Substance: ACETAMINOPHEN
  224. ACETAMINOPHEN [Suspect]
     Active Substance: ACETAMINOPHEN
  225. ACTEMRA [Suspect]
     Active Substance: TOCILIZUMAB
     Indication: Rheumatoid arthritis
     Route: 058
  226. ACTEMRA [Suspect]
     Active Substance: TOCILIZUMAB
     Route: 042
  227. ACTEMRA [Suspect]
     Active Substance: TOCILIZUMAB
     Route: 058
  228. ACTEMRA [Suspect]
     Active Substance: TOCILIZUMAB
     Route: 061
  229. ACTEMRA [Suspect]
     Active Substance: TOCILIZUMAB
     Route: 065
  230. ACTEMRA [Suspect]
     Active Substance: TOCILIZUMAB
     Route: 048
  231. ACTEMRA [Suspect]
     Active Substance: TOCILIZUMAB
  232. ACTEMRA [Suspect]
     Active Substance: TOCILIZUMAB
     Route: 042
  233. ACTEMRA [Suspect]
     Active Substance: TOCILIZUMAB
     Route: 042
  234. ACTEMRA [Suspect]
     Active Substance: TOCILIZUMAB
     Route: 065
  235. ACTEMRA [Suspect]
     Active Substance: TOCILIZUMAB
     Route: 048
  236. ACTEMRA [Suspect]
     Active Substance: TOCILIZUMAB
     Route: 042
  237. ACTEMRA [Suspect]
     Active Substance: TOCILIZUMAB
     Route: 048
  238. ACTEMRA [Suspect]
     Active Substance: TOCILIZUMAB
     Route: 042
  239. PREDNISONE [Suspect]
     Active Substance: PREDNISONE
     Indication: Product used for unknown indication
     Route: 048
  240. PREDNISONE [Suspect]
     Active Substance: PREDNISONE
     Route: 065
  241. PREDNISONE [Suspect]
     Active Substance: PREDNISONE
     Route: 058
  242. PREDNISONE [Suspect]
     Active Substance: PREDNISONE
     Route: 048
  243. PREDNISONE [Suspect]
     Active Substance: PREDNISONE
     Route: 065
  244. PREDNISONE [Suspect]
     Active Substance: PREDNISONE
     Route: 048
  245. HYDROXYCHLOROQUINE SULFATE [Suspect]
     Active Substance: HYDROXYCHLOROQUINE SULFATE
     Indication: Rheumatoid arthritis
     Dosage: 400 MG, QD
     Route: 065
  246. METHOTREXATE [Suspect]
     Active Substance: METHOTREXATE
     Indication: Rheumatoid arthritis
     Route: 051
  247. METHOTREXATE [Suspect]
     Active Substance: METHOTREXATE
     Indication: Product used for unknown indication
     Route: 065
  248. METHOTREXATE [Suspect]
     Active Substance: METHOTREXATE
     Dosage: 20 MG, QD (1 EVERY 1 WEEK)
     Route: 048
  249. METHOTREXATE [Suspect]
     Active Substance: METHOTREXATE
     Dosage: 15 MG, QD
     Route: 058
  250. METHOTREXATE [Suspect]
     Active Substance: METHOTREXATE
     Route: 050
  251. METHOTREXATE [Suspect]
     Active Substance: METHOTREXATE
     Route: 058
  252. METHOTREXATE [Suspect]
     Active Substance: METHOTREXATE
     Route: 050
  253. METHOTREXATE [Suspect]
     Active Substance: METHOTREXATE
     Route: 065
  254. METHOTREXATE [Suspect]
     Active Substance: METHOTREXATE
     Dosage: 20 MG, WE
     Route: 065
  255. METHOTREXATE [Suspect]
     Active Substance: METHOTREXATE
     Dosage: 25 MG, QD
     Route: 048
  256. METHOTREXATE [Suspect]
     Active Substance: METHOTREXATE
     Dosage: 25 MG, QD (1 EVERY 1 DAY) (NOT SPECIFIED)
     Route: 065
  257. METHOTREXATE [Suspect]
     Active Substance: METHOTREXATE
     Dosage: 20 MG, QD
     Route: 048
  258. METHOTREXATE [Suspect]
     Active Substance: METHOTREXATE
     Dosage: 25 MG, WE
     Route: 048
  259. METHOTREXATE [Suspect]
     Active Substance: METHOTREXATE
     Dosage: 25 MG, WE
     Route: 051
  260. METHOTREXATE [Suspect]
     Active Substance: METHOTREXATE
     Dosage: 20 MG, WE
     Route: 058
  261. METHOTREXATE [Suspect]
     Active Substance: METHOTREXATE
     Dosage: 15 MG, QD (1 EVERY 1 DAY)
     Route: 048
  262. METHOTREXATE [Suspect]
     Active Substance: METHOTREXATE
     Dosage: 25 MG, QD
     Route: 013
  263. METHOTREXATE [Suspect]
     Active Substance: METHOTREXATE
     Dosage: 1 G, Q12H
     Route: 050
  264. METHOTREXATE [Suspect]
     Active Substance: METHOTREXATE
     Route: 048
  265. METHOTREXATE [Suspect]
     Active Substance: METHOTREXATE
     Dosage: 20 MG, QD
     Route: 065
  266. METHOTREXATE [Suspect]
     Active Substance: METHOTREXATE
     Route: 048
  267. METHOTREXATE [Suspect]
     Active Substance: METHOTREXATE
     Dosage: 25 MG, WE
     Route: 058
  268. METHOTREXATE [Suspect]
     Active Substance: METHOTREXATE
     Dosage: 25 MG, WE
     Route: 013
  269. METHOTREXATE [Suspect]
     Active Substance: METHOTREXATE
     Dosage: 20 MG, WE
     Route: 065
  270. METHOTREXATE [Suspect]
     Active Substance: METHOTREXATE
     Route: 058
  271. METHOTREXATE [Suspect]
     Active Substance: METHOTREXATE
     Route: 058
  272. METHOTREXATE [Suspect]
     Active Substance: METHOTREXATE
     Dosage: 25 MG, WE (1 EVERY 1 WEEK)
     Route: 013
  273. METHOTREXATE [Suspect]
     Active Substance: METHOTREXATE
     Dosage: 1 G, BID
     Route: 048
  274. METHOTREXATE [Suspect]
     Active Substance: METHOTREXATE
     Dosage: 15 MG, WE
     Route: 048
  275. METHOTREXATE [Suspect]
     Active Substance: METHOTREXATE
     Dosage: 25 MG
     Route: 048
  276. METHOTREXATE [Suspect]
     Active Substance: METHOTREXATE
     Dosage: 25 MG, QD
     Route: 048
  277. METHOTREXATE [Suspect]
     Active Substance: METHOTREXATE
     Dosage: 2 G, QD
     Route: 048
  278. METHOTREXATE [Suspect]
     Active Substance: METHOTREXATE
     Route: 048
  279. METHOTREXATE [Suspect]
     Active Substance: METHOTREXATE
     Dosage: 1 G, Q24H
     Route: 050
  280. METHOTREXATE [Suspect]
     Active Substance: METHOTREXATE
     Route: 051
  281. METHOTREXATE [Suspect]
     Active Substance: METHOTREXATE
     Dosage: 1 DF, QD
     Route: 048
  282. METHOTREXATE [Suspect]
     Active Substance: METHOTREXATE
     Route: 065
  283. METHOTREXATE [Suspect]
     Active Substance: METHOTREXATE
     Dosage: 2 G, QD
     Route: 065
  284. METHOTREXATE [Suspect]
     Active Substance: METHOTREXATE
     Dosage: 1 G, Q24H
     Route: 050
  285. METHOTREXATE [Suspect]
     Active Substance: METHOTREXATE
     Route: 048
  286. METHOTREXATE [Suspect]
     Active Substance: METHOTREXATE
     Route: 048
  287. METHOTREXATE [Suspect]
     Active Substance: METHOTREXATE
     Route: 050
  288. METHOTREXATE [Suspect]
     Active Substance: METHOTREXATE
     Route: 065
  289. METHOTREXATE [Suspect]
     Active Substance: METHOTREXATE
     Dosage: 15 MG, WE
     Route: 065
  290. PLAQUENIL [Suspect]
     Active Substance: HYDROXYCHLOROQUINE SULFATE
     Indication: Rheumatoid arthritis
     Route: 065
  291. PLAQUENIL [Suspect]
     Active Substance: HYDROXYCHLOROQUINE SULFATE
     Route: 005
  292. PLAQUENIL [Suspect]
     Active Substance: HYDROXYCHLOROQUINE SULFATE
     Route: 065
  293. PLAQUENIL [Suspect]
     Active Substance: HYDROXYCHLOROQUINE SULFATE
     Route: 065
  294. PLAQUENIL [Suspect]
     Active Substance: HYDROXYCHLOROQUINE SULFATE
     Route: 065
  295. PLAQUENIL [Suspect]
     Active Substance: HYDROXYCHLOROQUINE SULFATE
     Route: 065
  296. PLAQUENIL [Suspect]
     Active Substance: HYDROXYCHLOROQUINE SULFATE
     Dosage: 400 MG, QD
     Route: 048
     Dates: start: 2006
  297. PLAQUENIL [Suspect]
     Active Substance: HYDROXYCHLOROQUINE SULFATE
     Route: 065
  298. PLAQUENIL [Suspect]
     Active Substance: HYDROXYCHLOROQUINE SULFATE
     Route: 065
  299. PLAQUENIL [Suspect]
     Active Substance: HYDROXYCHLOROQUINE SULFATE
     Route: 065
  300. PLAQUENIL [Suspect]
     Active Substance: HYDROXYCHLOROQUINE SULFATE
     Dosage: UNK, QD
     Route: 048
  301. ETANERCEPT [Suspect]
     Active Substance: ETANERCEPT
     Indication: Product used for unknown indication
     Route: 065
  302. CORTISONE ACETATE [Suspect]
     Active Substance: CORTISONE ACETATE
     Indication: Rheumatoid arthritis
     Route: 065
  303. CORTISONE ACETATE [Suspect]
     Active Substance: CORTISONE ACETATE
     Route: 048
  304. CORTISONE ACETATE [Suspect]
     Active Substance: CORTISONE ACETATE
     Route: 061
  305. CORTISONE ACETATE [Suspect]
     Active Substance: CORTISONE ACETATE
     Route: 065
  306. CORTISONE ACETATE [Suspect]
     Active Substance: CORTISONE ACETATE
     Route: 048
  307. CORTISONE ACETATE [Suspect]
     Active Substance: CORTISONE ACETATE
     Route: 065
  308. CORTISONE ACETATE [Suspect]
     Active Substance: CORTISONE ACETATE
     Route: 048
  309. CELEBREX [Suspect]
     Active Substance: CELECOXIB
     Indication: Product used for unknown indication
     Dosage: 2 DF, QD
     Route: 048
  310. CELEBREX [Suspect]
     Active Substance: CELECOXIB
     Route: 065
  311. INFLIXIMAB [Suspect]
     Active Substance: INFLIXIMAB
     Indication: Rheumatoid arthritis
  312. INFLIXIMAB [Suspect]
     Active Substance: INFLIXIMAB
     Route: 065
  313. INFLIXIMAB [Suspect]
     Active Substance: INFLIXIMAB
     Route: 042
  314. INFLIXIMAB [Suspect]
     Active Substance: INFLIXIMAB
  315. INFLIXIMAB [Suspect]
     Active Substance: INFLIXIMAB
  316. INFLIXIMAB [Suspect]
     Active Substance: INFLIXIMAB
  317. CIMZIA [Suspect]
     Active Substance: CERTOLIZUMAB PEGOL
     Indication: Rheumatoid arthritis
     Route: 058
  318. CIMZIA [Suspect]
     Active Substance: CERTOLIZUMAB PEGOL
     Indication: Psoriasis
     Route: 065
  319. CIMZIA [Suspect]
     Active Substance: CERTOLIZUMAB PEGOL
     Route: 058
  320. FOLIC ACID [Suspect]
     Active Substance: FOLIC ACID
     Indication: Rheumatoid arthritis
     Route: 058
  321. FOLIC ACID [Suspect]
     Active Substance: FOLIC ACID
     Route: 065
  322. FOLIC ACID [Suspect]
     Active Substance: FOLIC ACID
     Route: 065
  323. FOLIC ACID [Suspect]
     Active Substance: FOLIC ACID
     Route: 065
  324. FOLIC ACID [Suspect]
     Active Substance: FOLIC ACID
     Route: 065
  325. FOLIC ACID [Suspect]
     Active Substance: FOLIC ACID
     Route: 065
  326. FOLIC ACID [Suspect]
     Active Substance: FOLIC ACID
     Route: 065
  327. FOLIC ACID [Suspect]
     Active Substance: FOLIC ACID
     Route: 065
  328. FOLIC ACID [Suspect]
     Active Substance: FOLIC ACID
     Route: 048
  329. FOLIC ACID [Suspect]
     Active Substance: FOLIC ACID
     Route: 065
  330. FOLIC ACID [Suspect]
     Active Substance: FOLIC ACID
     Route: 065
  331. FOLIC ACID [Suspect]
     Active Substance: FOLIC ACID
     Route: 048
  332. FOLIC ACID [Suspect]
     Active Substance: FOLIC ACID
     Route: 065
  333. FOLIC ACID [Suspect]
     Active Substance: FOLIC ACID
     Route: 065
  334. FOLIC ACID [Suspect]
     Active Substance: FOLIC ACID
     Route: 065
  335. MYCOPHENOLATE MOFETIL [Suspect]
     Active Substance: MYCOPHENOLATE MOFETIL
     Indication: Product used for unknown indication
     Route: 065
  336. MYCOPHENOLATE MOFETIL [Suspect]
     Active Substance: MYCOPHENOLATE MOFETIL
     Indication: Rheumatoid arthritis
     Route: 065
  337. DICLOFENAC SODIUM [Suspect]
     Active Substance: DICLOFENAC SODIUM
     Indication: Product used for unknown indication
     Route: 065
  338. DICLOFENAC SODIUM [Suspect]
     Active Substance: DICLOFENAC SODIUM
     Route: 047
  339. DICLOFENAC SODIUM [Suspect]
     Active Substance: DICLOFENAC SODIUM
     Dosage: 50 MG, QD (1 EVERY 1 DAY)
     Route: 065
  340. DICLOFENAC SODIUM [Suspect]
     Active Substance: DICLOFENAC SODIUM
     Route: 065
  341. DICLOFENAC SODIUM [Suspect]
     Active Substance: DICLOFENAC SODIUM
     Route: 065
  342. DICLOFENAC SODIUM [Suspect]
     Active Substance: DICLOFENAC SODIUM
     Route: 050
  343. STELARA [Suspect]
     Active Substance: USTEKINUMAB
     Indication: Product used for unknown indication
     Route: 058
  344. STELARA [Suspect]
     Active Substance: USTEKINUMAB
     Route: 065
  345. STELARA [Suspect]
     Active Substance: USTEKINUMAB
     Route: 058
  346. ORENCIA [Suspect]
     Active Substance: ABATACEPT
     Indication: Rheumatoid arthritis
     Route: 065
  347. ORENCIA [Suspect]
     Active Substance: ABATACEPT
     Route: 058
  348. ORENCIA [Suspect]
     Active Substance: ABATACEPT
     Route: 058
  349. ORENCIA [Suspect]
     Active Substance: ABATACEPT
     Route: 065
  350. ORENCIA [Suspect]
     Active Substance: ABATACEPT
     Route: 058
  351. ORENCIA [Suspect]
     Active Substance: ABATACEPT
     Route: 065
  352. ORENCIA [Suspect]
     Active Substance: ABATACEPT
     Route: 042
  353. ORENCIA [Suspect]
     Active Substance: ABATACEPT
     Route: 042
  354. APREMILAST [Suspect]
     Active Substance: APREMILAST
     Indication: Product used for unknown indication
     Dosage: 3 MG, BID (3 MILLIGRAM, 2X/DAY (BID))
     Route: 065
  355. USTEKINUMAB [Suspect]
     Active Substance: USTEKINUMAB
     Indication: Product used for unknown indication
     Route: 065
  356. USTEKINUMAB [Suspect]
     Active Substance: USTEKINUMAB
     Route: 058
  357. USTEKINUMAB [Suspect]
     Active Substance: USTEKINUMAB
     Route: 042
  358. HUMIRA [Suspect]
     Active Substance: ADALIMUMAB
     Indication: Rheumatoid arthritis
     Route: 058
  359. HUMIRA [Suspect]
     Active Substance: ADALIMUMAB
     Route: 058
  360. HUMIRA [Suspect]
     Active Substance: ADALIMUMAB
     Route: 065
  361. HUMIRA [Suspect]
     Active Substance: ADALIMUMAB
     Route: 058
  362. HUMIRA [Suspect]
     Active Substance: ADALIMUMAB
     Route: 058
  363. HUMIRA [Suspect]
     Active Substance: ADALIMUMAB
     Route: 058
  364. HUMIRA [Suspect]
     Active Substance: ADALIMUMAB
     Route: 058
  365. PHTHALYLSULFATHIAZOLE [Suspect]
     Active Substance: PHTHALYLSULFATHIAZOLE
     Indication: Rheumatoid arthritis
     Route: 058
  366. PHTHALYLSULFATHIAZOLE [Suspect]
     Active Substance: PHTHALYLSULFATHIAZOLE
     Route: 058
  367. PHTHALYLSULFATHIAZOLE [Suspect]
     Active Substance: PHTHALYLSULFATHIAZOLE
     Route: 048
  368. PHTHALYLSULFATHIAZOLE [Suspect]
     Active Substance: PHTHALYLSULFATHIAZOLE
     Route: 067
  369. PHTHALYLSULFATHIAZOLE [Suspect]
     Active Substance: PHTHALYLSULFATHIAZOLE
     Route: 048
  370. PHTHALYLSULFATHIAZOLE [Suspect]
     Active Substance: PHTHALYLSULFATHIAZOLE
     Route: 016
  371. PHTHALYLSULFATHIAZOLE [Suspect]
     Active Substance: PHTHALYLSULFATHIAZOLE
     Route: 065
  372. PHTHALYLSULFATHIAZOLE [Suspect]
     Active Substance: PHTHALYLSULFATHIAZOLE
     Route: 065
  373. PHTHALYLSULFATHIAZOLE [Suspect]
     Active Substance: PHTHALYLSULFATHIAZOLE
     Route: 065
  374. PHTHALYLSULFATHIAZOLE [Suspect]
     Active Substance: PHTHALYLSULFATHIAZOLE
     Dosage: 1000 MG, BID
     Route: 048
  375. SULFATHALIDINE [Suspect]
     Active Substance: PHTHALYLSULFATHIAZOLE
     Indication: Rheumatoid arthritis
     Route: 065
  376. DOXYCYCLINE [Suspect]
     Active Substance: DOXYCYCLINE
     Indication: Product used for unknown indication
  377. LYRICA [Suspect]
     Active Substance: PREGABALIN
     Indication: Rheumatoid arthritis
     Route: 048
  378. KEVZARA [Suspect]
     Active Substance: SARILUMAB
     Indication: Rheumatoid arthritis
     Route: 065
  379. OTEZLA [Suspect]
     Active Substance: APREMILAST
     Indication: Product used for unknown indication
     Route: 048
  380. OTEZLA [Suspect]
     Active Substance: APREMILAST
     Dosage: 3 MG, BID (1 EVERY 12 HOURS)
     Route: 048
  381. DESOXIMETASONE [Suspect]
     Active Substance: DESOXIMETASONE
     Indication: Rheumatoid arthritis
     Route: 048
  382. DESOXIMETASONE [Suspect]
     Active Substance: DESOXIMETASONE
     Route: 058
  383. DESOXIMETASONE [Suspect]
     Active Substance: DESOXIMETASONE
     Route: 048
  384. DESOXIMETASONE [Suspect]
     Active Substance: DESOXIMETASONE
     Dosage: 25 MG, WE
     Route: 065
  385. DESOXIMETASONE [Suspect]
     Active Substance: DESOXIMETASONE
     Route: 048
  386. DESOXIMETASONE [Suspect]
     Active Substance: DESOXIMETASONE
     Route: 065
  387. ENBREL [Suspect]
     Active Substance: ETANERCEPT
     Indication: Rheumatoid arthritis
     Route: 065
  388. ENBREL [Suspect]
     Active Substance: ETANERCEPT
     Route: 058
  389. ENBREL [Suspect]
     Active Substance: ETANERCEPT
     Route: 058
  390. ENBREL [Suspect]
     Active Substance: ETANERCEPT
     Route: 058
  391. ENBREL [Suspect]
     Active Substance: ETANERCEPT
     Dosage: 50 MG, WE (1 EVERY 1 WEEK)
     Route: 058
  392. ENBREL [Suspect]
     Active Substance: ETANERCEPT
     Dosage: 25 MG, QD
     Route: 048
  393. ENBREL [Suspect]
     Active Substance: ETANERCEPT
     Dosage: 50 MG, WE
     Route: 058
  394. ENBREL [Suspect]
     Active Substance: ETANERCEPT
     Dosage: 50 MG, WE
     Route: 058
  395. ENBREL [Suspect]
     Active Substance: ETANERCEPT
     Route: 058
  396. ENBREL [Suspect]
     Active Substance: ETANERCEPT
     Dosage: UNK UNK, WE
     Route: 065
  397. ENBREL [Suspect]
     Active Substance: ETANERCEPT
     Dosage: 50 MG, QD
     Route: 058
  398. ENBREL [Suspect]
     Active Substance: ETANERCEPT
  399. ENBREL [Suspect]
     Active Substance: ETANERCEPT
     Dosage: 50 MG, WE
     Route: 058
  400. ENBREL [Suspect]
     Active Substance: ETANERCEPT
     Route: 065
  401. ENBREL [Suspect]
     Active Substance: ETANERCEPT
     Route: 065
  402. ENBREL [Suspect]
     Active Substance: ETANERCEPT
     Dosage: UNK UNK, WE
     Route: 058
  403. FLUMETHASONE PIVALATE [Suspect]
     Active Substance: FLUMETHASONE PIVALATE
     Indication: Rheumatoid arthritis
     Route: 058
  404. FLUMETHASONE PIVALATE [Suspect]
     Active Substance: FLUMETHASONE PIVALATE
     Route: 003
  405. FLUMETHASONE PIVALATE [Suspect]
     Active Substance: FLUMETHASONE PIVALATE
     Route: 065
  406. FLUMETHASONE [Suspect]
     Active Substance: FLUMETHASONE
     Indication: Product used for unknown indication
     Route: 065
  407. CETIRIZINE HYDROCHLORIDE [Suspect]
     Active Substance: CETIRIZINE HYDROCHLORIDE
     Indication: Rheumatoid arthritis
     Route: 065
  408. CETIRIZINE HYDROCHLORIDE [Suspect]
     Active Substance: CETIRIZINE HYDROCHLORIDE
     Route: 065
  409. CETIRIZINE HYDROCHLORIDE [Suspect]
     Active Substance: CETIRIZINE HYDROCHLORIDE
     Route: 048
  410. CETIRIZINE HYDROCHLORIDE [Suspect]
     Active Substance: CETIRIZINE HYDROCHLORIDE
     Route: 065
  411. CETIRIZINE HYDROCHLORIDE [Suspect]
     Active Substance: CETIRIZINE HYDROCHLORIDE
     Route: 065
  412. CETIRIZINE HYDROCHLORIDE [Suspect]
     Active Substance: CETIRIZINE HYDROCHLORIDE
     Route: 065
  413. CETIRIZINE HYDROCHLORIDE [Suspect]
     Active Substance: CETIRIZINE HYDROCHLORIDE
     Route: 048
  414. CETIRIZINE HYDROCHLORIDE [Suspect]
     Active Substance: CETIRIZINE HYDROCHLORIDE
     Route: 065
  415. CETIRIZINE HYDROCHLORIDE [Suspect]
     Active Substance: CETIRIZINE HYDROCHLORIDE
     Route: 048
  416. CETIRIZINE HYDROCHLORIDE [Suspect]
     Active Substance: CETIRIZINE HYDROCHLORIDE
     Route: 065
  417. PREDNISONE [Suspect]
     Active Substance: PREDNISONE
     Indication: Rheumatoid arthritis
     Route: 065
  418. PREDNISONE [Suspect]
     Active Substance: PREDNISONE
     Route: 065
  419. PREDNISONE [Suspect]
     Active Substance: PREDNISONE
     Route: 048
  420. PREDNISONE [Suspect]
     Active Substance: PREDNISONE
     Route: 065
  421. PREDNISONE [Suspect]
     Active Substance: PREDNISONE
     Route: 065
  422. PREDNISONE [Suspect]
     Active Substance: PREDNISONE
     Route: 065
  423. PREDNISONE [Suspect]
     Active Substance: PREDNISONE
     Route: 065
  424. PREDNISONE [Suspect]
     Active Substance: PREDNISONE
     Route: 048
  425. CORTISONE ACETATE [Suspect]
     Active Substance: CORTISONE ACETATE
     Indication: Rheumatoid arthritis
     Route: 065
  426. CORTISONE ACETATE [Suspect]
     Active Substance: CORTISONE ACETATE
     Route: 065
  427. CORTISONE ACETATE [Suspect]
     Active Substance: CORTISONE ACETATE
     Route: 065
  428. CORTISONE ACETATE [Suspect]
     Active Substance: CORTISONE ACETATE
     Route: 061
  429. TOPICORT [Suspect]
     Active Substance: DESOXIMETASONE
     Indication: Product used for unknown indication
     Route: 003
  430. TOPICORT [Suspect]
     Active Substance: DESOXIMETASONE
     Route: 048
  431. TOPICORT [Suspect]
     Active Substance: DESOXIMETASONE
     Route: 058
  432. TOPICORT [Suspect]
     Active Substance: DESOXIMETASONE
     Route: 065
  433. NAPROXEN [Suspect]
     Active Substance: NAPROXEN
     Indication: Product used for unknown indication
     Route: 065
  434. CETIRIZINE HYDROCHLORIDE\PSEUDOEPHEDRINE HYDROCHLORIDE [Suspect]
     Active Substance: CETIRIZINE HYDROCHLORIDE\PSEUDOEPHEDRINE HYDROCHLORIDE
     Indication: Rheumatoid arthritis
     Route: 065
  435. CETIRIZINE HYDROCHLORIDE\PSEUDOEPHEDRINE HYDROCHLORIDE [Suspect]
     Active Substance: CETIRIZINE HYDROCHLORIDE\PSEUDOEPHEDRINE HYDROCHLORIDE
     Route: 065
  436. CETIRIZINE HYDROCHLORIDE\PSEUDOEPHEDRINE HYDROCHLORIDE [Suspect]
     Active Substance: CETIRIZINE HYDROCHLORIDE\PSEUDOEPHEDRINE HYDROCHLORIDE
     Route: 065
  437. CETIRIZINE HYDROCHLORIDE\PSEUDOEPHEDRINE HYDROCHLORIDE [Suspect]
     Active Substance: CETIRIZINE HYDROCHLORIDE\PSEUDOEPHEDRINE HYDROCHLORIDE
     Route: 065
  438. CETIRIZINE HYDROCHLORIDE\PSEUDOEPHEDRINE HYDROCHLORIDE [Suspect]
     Active Substance: CETIRIZINE HYDROCHLORIDE\PSEUDOEPHEDRINE HYDROCHLORIDE
     Dosage: 10 MG, QD
     Route: 065
  439. CETIRIZINE HYDROCHLORIDE\PSEUDOEPHEDRINE HYDROCHLORIDE [Suspect]
     Active Substance: CETIRIZINE HYDROCHLORIDE\PSEUDOEPHEDRINE HYDROCHLORIDE
     Route: 065
  440. CETIRIZINE HYDROCHLORIDE\PSEUDOEPHEDRINE HYDROCHLORIDE [Suspect]
     Active Substance: CETIRIZINE HYDROCHLORIDE\PSEUDOEPHEDRINE HYDROCHLORIDE
     Dosage: 10 MG, QD
     Route: 065
  441. METHOTREXATE [Suspect]
     Active Substance: METHOTREXATE
     Indication: Rheumatoid arthritis
     Dosage: 25 MG, WE
     Route: 013
  442. METHOTREXATE [Suspect]
     Active Substance: METHOTREXATE
     Route: 058
  443. PREDNISONE [Suspect]
     Active Substance: PREDNISONE
     Indication: Rheumatoid arthritis
     Route: 048
  444. PREDNISONE [Suspect]
     Active Substance: PREDNISONE
     Indication: Condition aggravated
     Route: 048
  445. PREDNISONE [Suspect]
     Active Substance: PREDNISONE
     Route: 065
  446. DESOXIMETASONE [Suspect]
     Active Substance: DESOXIMETASONE
     Indication: Rheumatoid arthritis
     Route: 061
  447. DESOXIMETASONE [Suspect]
     Active Substance: DESOXIMETASONE
     Route: 058
  448. DESOXIMETASONE [Suspect]
     Active Substance: DESOXIMETASONE
     Route: 048
  449. DESOXIMETASONE [Suspect]
     Active Substance: DESOXIMETASONE
     Route: 065
  450. DESOXIMETASONE [Suspect]
     Active Substance: DESOXIMETASONE
     Route: 048
  451. DESOXIMETASONE [Suspect]
     Active Substance: DESOXIMETASONE
     Route: 065
  452. DESOXIMETASONE [Suspect]
     Active Substance: DESOXIMETASONE
     Route: 048
  453. DESOXIMETASONE [Suspect]
     Active Substance: DESOXIMETASONE
     Route: 065
  454. DESOXIMETASONE [Suspect]
     Active Substance: DESOXIMETASONE
     Route: 048
  455. TOFACITINIB CITRATE [Suspect]
     Active Substance: TOFACITINIB CITRATE
     Indication: Psoriatic arthropathy
     Dosage: 5 MG, BID
     Route: 065
  456. TOFACITINIB CITRATE [Suspect]
     Active Substance: TOFACITINIB CITRATE
     Indication: Rheumatoid arthritis
     Route: 065
  457. TOFACITINIB CITRATE [Suspect]
     Active Substance: TOFACITINIB CITRATE
     Route: 065
  458. TUMS ULTRA [Suspect]
     Active Substance: CALCIUM CARBONATE
     Indication: Product used for unknown indication
     Route: 065
  459. TOFACITINIB [Suspect]
     Active Substance: TOFACITINIB
     Indication: Product used for unknown indication
     Dosage: 5 MG, QD
     Route: 065
  460. TOFACITINIB [Suspect]
     Active Substance: TOFACITINIB
     Dosage: 5 MG, WE
     Route: 048
  461. TOFACITINIB [Suspect]
     Active Substance: TOFACITINIB
     Dosage: 5 MG, WE
     Route: 048
  462. HYDROCORTISONE [Suspect]
     Active Substance: HYDROCORTISONE
     Indication: Rheumatoid arthritis
     Route: 058
  463. GOLIMUMAB [Suspect]
     Active Substance: GOLIMUMAB
     Indication: Prostatic specific antigen
     Route: 065
  464. GOLIMUMAB [Suspect]
     Active Substance: GOLIMUMAB
     Indication: Rheumatoid arthritis
     Route: 058
  465. PANTOPRAZOLE SODIUM ANHYDROUS [Suspect]
     Active Substance: PANTOPRAZOLE SODIUM ANHYDROUS
     Indication: Product used for unknown indication
  466. DICLOFENAC SODIUM [Suspect]
     Active Substance: DICLOFENAC SODIUM
     Indication: Product used for unknown indication
  467. ACETAMINOPHEN\CODEINE PHOSPHATE [Suspect]
     Active Substance: ACETAMINOPHEN\CODEINE PHOSPHATE
     Indication: Product used for unknown indication
  468. APREPITANT [Suspect]
     Active Substance: APREPITANT
     Indication: Product used for unknown indication
     Route: 048
  469. APREPITANT [Suspect]
     Active Substance: APREPITANT
  470. APREPITANT [Suspect]
     Active Substance: APREPITANT
  471. APREPITANT [Suspect]
     Active Substance: APREPITANT
  472. APREPITANT [Suspect]
     Active Substance: APREPITANT
  473. APREPITANT [Suspect]
     Active Substance: APREPITANT
     Route: 048
  474. APREPITANT [Suspect]
     Active Substance: APREPITANT
     Route: 042
  475. APREPITANT [Suspect]
     Active Substance: APREPITANT
     Route: 042
  476. ASACOL [Suspect]
     Active Substance: MESALAMINE
     Indication: Product used for unknown indication
  477. DILTIAZEM HYDROCHLORIDE [Suspect]
     Active Substance: DILTIAZEM HYDROCHLORIDE
     Indication: Product used for unknown indication
     Route: 065
  478. DILTIAZEM HYDROCHLORIDE [Suspect]
     Active Substance: DILTIAZEM HYDROCHLORIDE
     Route: 042
  479. CODEINE [Suspect]
     Active Substance: CODEINE
     Indication: Product used for unknown indication
     Route: 065
  480. SOLU-MEDROL [Suspect]
     Active Substance: METHYLPREDNISOLONE SODIUM SUCCINATE
     Indication: Product used for unknown indication
  481. ENTYVIO [Suspect]
     Active Substance: VEDOLIZUMAB
     Indication: Product used for unknown indication
     Route: 065
  482. ENTYVIO [Suspect]
     Active Substance: VEDOLIZUMAB
     Route: 065
  483. ENTYVIO [Suspect]
     Active Substance: VEDOLIZUMAB
     Route: 065
  484. FLUMETHASONE [Suspect]
     Active Substance: FLUMETHASONE
     Indication: Rheumatoid arthritis
     Route: 058

REACTIONS (106)
  - Drug-induced liver injury [Fatal]
  - Night sweats [Fatal]
  - Hypersensitivity [Fatal]
  - Infusion site reaction [Fatal]
  - Hepatic enzyme increased [Not Recovered/Not Resolved]
  - Asthma [Fatal]
  - Condition aggravated [Not Recovered/Not Resolved]
  - Nail disorder [Fatal]
  - Adverse drug reaction [Not Recovered/Not Resolved]
  - Onychomadesis [Fatal]
  - Abdominal pain upper [Fatal]
  - Pain in extremity [Fatal]
  - Anti-cyclic citrullinated peptide antibody positive [Fatal]
  - Grip strength decreased [Unknown]
  - Product label confusion [Fatal]
  - Product use issue [Not Recovered/Not Resolved]
  - Gait inability [Fatal]
  - Product use in unapproved indication [Unknown]
  - Contusion [Fatal]
  - Psoriasis [Unknown]
  - Neck pain [Fatal]
  - Treatment noncompliance [Not Recovered/Not Resolved]
  - Coeliac disease [Fatal]
  - Hypertension [Not Recovered/Not Resolved]
  - Dyspepsia [Fatal]
  - Arthropathy [Not Recovered/Not Resolved]
  - Back injury [Fatal]
  - Wound infection [Unknown]
  - C-reactive protein increased [Fatal]
  - Treatment failure [Not Recovered/Not Resolved]
  - Abdominal distension [Fatal]
  - Rash [Fatal]
  - Weight decreased [Unknown]
  - Type 2 diabetes mellitus [Not Recovered/Not Resolved]
  - Delirium [Unknown]
  - Alopecia [Fatal]
  - Muscular weakness [Unknown]
  - Pericarditis [Not Recovered/Not Resolved]
  - Discomfort [Fatal]
  - Rheumatoid arthritis [Fatal]
  - Hypoaesthesia [Not Recovered/Not Resolved]
  - Joint range of motion decreased [Not Recovered/Not Resolved]
  - Maternal exposure during pregnancy [Unknown]
  - Fibromyalgia [Fatal]
  - Joint swelling [Fatal]
  - Adjustment disorder with depressed mood [Unknown]
  - Blister [Fatal]
  - Adverse event [Not Recovered/Not Resolved]
  - Amnesia [Unknown]
  - Synovitis [Fatal]
  - Rheumatoid factor positive [Fatal]
  - Drug hypersensitivity [Not Recovered/Not Resolved]
  - Depression [Not Recovered/Not Resolved]
  - Nausea [Fatal]
  - Exposure during pregnancy [Not Recovered/Not Resolved]
  - Injury [Unknown]
  - Diarrhoea [Fatal]
  - Drug intolerance [Not Recovered/Not Resolved]
  - Psoriatic arthropathy [Not Recovered/Not Resolved]
  - Hand deformity [Not Recovered/Not Resolved]
  - Systemic lupus erythematosus [Not Recovered/Not Resolved]
  - Swollen joint count increased [Not Recovered/Not Resolved]
  - Wound [Not Recovered/Not Resolved]
  - General physical health deterioration [Not Recovered/Not Resolved]
  - Disability [Not Recovered/Not Resolved]
  - Live birth [Unknown]
  - Dizziness [Fatal]
  - Sleep disorder [Fatal]
  - Therapy non-responder [Unknown]
  - Pain [Fatal]
  - Dyspnoea [Unknown]
  - Malaise [Not Recovered/Not Resolved]
  - Fatigue [Not Recovered/Not Resolved]
  - Arthralgia [Fatal]
  - Pemphigus [Not Recovered/Not Resolved]
  - Therapeutic product effect decreased [Not Recovered/Not Resolved]
  - Infusion related reaction [Fatal]
  - Abdominal discomfort [Not Recovered/Not Resolved]
  - Chest pain [Fatal]
  - Oedema [Unknown]
  - Walking aid user [Unknown]
  - Headache [Not Recovered/Not Resolved]
  - Breast cancer stage III [Not Recovered/Not Resolved]
  - Prescribed overdose [Unknown]
  - Decreased appetite [Not Recovered/Not Resolved]
  - Helicobacter infection [Not Recovered/Not Resolved]
  - Drug ineffective [Not Recovered/Not Resolved]
  - Gait disturbance [Not Recovered/Not Resolved]
  - Dislocation of vertebra [Unknown]
  - Anxiety [Unknown]
  - Duodenal ulcer perforation [Not Recovered/Not Resolved]
  - Contraindicated product administered [Not Recovered/Not Resolved]
  - Musculoskeletal stiffness [Fatal]
  - Abdominal pain [Not Recovered/Not Resolved]
  - Glossodynia [Not Recovered/Not Resolved]
  - Mobility decreased [Not Recovered/Not Resolved]
  - Intentional product use issue [Unknown]
  - Memory impairment [Not Recovered/Not Resolved]
  - Infection [Unknown]
  - Vomiting [Unknown]
  - Blood cholesterol increased [Not Recovered/Not Resolved]
  - Off label use [Fatal]
  - Rheumatic fever [Not Recovered/Not Resolved]
  - Liver injury [Not Recovered/Not Resolved]
  - Wheezing [Fatal]
  - Swelling [Not Recovered/Not Resolved]

NARRATIVE: CASE EVENT DATE: 20150901
